FAERS Safety Report 20726206 (Version 1)
Quarter: 2022Q2

REPORT INFORMATION
  Report Type: Spontaneous
  Country: US (occurrence: US)
  Receive Date: 20220419
  Receipt Date: 20220419
  Transmission Date: 20220721
  Serious: No
  Sender: FDA-Public Use
  Company Number: US-JNJFOC-20220427277

PATIENT
  Sex: Female

DRUGS (1)
  1. MOTRIN [Suspect]
     Active Substance: IBUPROFEN
     Indication: Headache
     Dosage: 4 TO 5 ^REGULAR MOTRIN^ PILLS PER DOSE, FREQUENCY UNKNOWN
     Route: 048

REACTIONS (1)
  - Incorrect dose administered [Unknown]
